FAERS Safety Report 25023680 (Version 1)
Quarter: 2025Q1

REPORT INFORMATION
  Report Type: Spontaneous
  Country: US (occurrence: US)
  Receive Date: 20250228
  Receipt Date: 20250228
  Transmission Date: 20250409
  Serious: No
  Sender: MERCK SHARP & DOHME LLC
  Company Number: US-009507513-2259440

PATIENT
  Sex: Male
  Weight: 94.8 kg

DRUGS (25)
  1. SOTATERCEPT [Suspect]
     Active Substance: SOTATERCEPT
  2. SOTATERCEPT [Suspect]
     Active Substance: SOTATERCEPT
  3. SOTATERCEPT [Suspect]
     Active Substance: SOTATERCEPT
  4. SOTATERCEPT [Suspect]
     Active Substance: SOTATERCEPT
  5. KETAMINE HYDROCHLORIDE [Concomitant]
     Active Substance: KETAMINE HYDROCHLORIDE
  6. LECITHIN [Concomitant]
     Active Substance: LECITHIN
  7. ALBUTEROL SULFATE [Concomitant]
     Active Substance: ALBUTEROL SULFATE
  8. SILDENAFIL [Concomitant]
     Active Substance: SILDENAFIL
  9. REMODULIN [Suspect]
     Active Substance: TREPROSTINIL
     Indication: Pulmonary arterial hypertension
     Route: 058
     Dates: start: 20230928
  10. ATORVASTATIN CALCIUM [Concomitant]
     Active Substance: ATORVASTATIN CALCIUM
  11. OPSUMIT [Concomitant]
     Active Substance: MACITENTAN
  12. CLONIDINE [Concomitant]
     Active Substance: CLONIDINE
  13. CLONIDINE [Concomitant]
     Active Substance: CLONIDINE
  14. KETOPROFEN [Concomitant]
     Active Substance: KETOPROFEN
  15. OXYGEN [Concomitant]
     Active Substance: OXYGEN
  16. SPIRONOLACTONE [Concomitant]
     Active Substance: SPIRONOLACTONE
  17. LIDOCAINE HYDROCHLORIDE [Concomitant]
     Active Substance: LIDOCAINE HYDROCHLORIDE
  18. FUROSEMIDE [Concomitant]
     Active Substance: FUROSEMIDE
  19. DIGOXIN [Concomitant]
     Active Substance: DIGOXIN
  20. CARVEDILOL [Concomitant]
     Active Substance: CARVEDILOL
  21. LISINOPRIL [Concomitant]
     Active Substance: LISINOPRIL
  22. AMITRIPTYLINE HYDROCHLORIDE [Concomitant]
     Active Substance: AMITRIPTYLINE HYDROCHLORIDE
  23. GABAPENTIN [Concomitant]
     Active Substance: GABAPENTIN
  24. POLOXAMER [Concomitant]
     Active Substance: POLOXAMER
  25. LOPERAMIDE [Concomitant]
     Active Substance: LOPERAMIDE

REACTIONS (3)
  - Illness [Recovering/Resolving]
  - Product dose omission issue [Unknown]
  - Cough [Recovering/Resolving]
